FAERS Safety Report 8445454-9 (Version None)
Quarter: 2012Q2

REPORT INFORMATION
  Report Type: 
  Country: None (occurrence: None)
  Receive Date: 20120323
  Receipt Date: 20111027
  Transmission Date: 20120825
  Serious: Yes (Hospitalization)
  Sender: FDA-Public Use
  Company Number: 163-21880-11103304

PATIENT
  Age: 53 Year
  Sex: Female
  Weight: 94.3482 kg

DRUGS (17)
  1. LENALIDOMIDE [Suspect]
     Indication: MULTIPLE MYELOMA
     Dosage: 5 MG, DAILY DAYS 1-14, PO
     Route: 048
     Dates: start: 20111001, end: 20111004
  2. COLACE (OCUSATE SODIUM) [Concomitant]
  3. LANTUS [Concomitant]
  4. LIPITOR [Concomitant]
  5. LISINOPRIL [Concomitant]
  6. METOPROLOL [Concomitant]
  7. ACYCLOVIR [Concomitant]
  8. ALLOPURINOL [Concomitant]
  9. OXYCODONE HCL [Concomitant]
  10. ACETAMINOPHEN [Concomitant]
  11. ZOLPIDEM [Concomitant]
  12. NOVOLOG [Concomitant]
  13. ASPIRIN [Concomitant]
  14. BACTRIM [Concomitant]
  15. OMEPRAZOLE [Concomitant]
  16. ROXICET [Concomitant]
  17. PROCHLORPERAZINE [Concomitant]

REACTIONS (1)
  - NEUTROPENIA [None]
